FAERS Safety Report 20865036 (Version 2)
Quarter: 2022Q2

REPORT INFORMATION
  Report Type: Spontaneous
  Country: US (occurrence: US)
  Receive Date: 20220524
  Receipt Date: 20220601
  Transmission Date: 20220721
  Serious: Yes (Hospitalization)
  Sender: FDA-Public Use
  Company Number: US-BIOCODEX2-2022000461

PATIENT

DRUGS (8)
  1. DIACOMIT [Suspect]
     Active Substance: STIRIPENTOL
     Indication: Severe myoclonic epilepsy of infancy
     Dosage: 500 MG SACHET, MIX 2 PACKETS IN 100 ML OF WATER AND GIVE FULL AMOUNT TWICE A DAY
     Route: 048
     Dates: start: 20190521
  2. ONFI [Concomitant]
     Active Substance: CLOBAZAM
     Indication: Severe myoclonic epilepsy of infancy
     Dosage: CLOBAZAM 2.5 MG/ML ORAL SUSPENSION, 3 ML TWICE A DAY BY ORAL ROUTE
     Route: 048
  3. ONFI [Concomitant]
     Active Substance: CLOBAZAM
     Indication: Severe myoclonic epilepsy of infancy
  4. DILANTIN [Concomitant]
     Active Substance: PHENYTOIN
     Indication: Product used for unknown indication
     Dosage: 50 MG CHEWABLE TABLET, CHEW 2 TABLETS 3 TIMES A DAY BY ORAL ROUTE FOR 30 DAYS
     Route: 048
  5. DILANTIN [Concomitant]
     Active Substance: PHENYTOIN
     Indication: Product used for unknown indication
     Dosage: UNK, QD
     Route: 065
  6. EPIDIOLEX [Concomitant]
     Active Substance: CANNABIDIOL
     Indication: Product used for unknown indication
  7. MIDAZOLAM [Concomitant]
     Active Substance: MIDAZOLAM
     Indication: Seizure
     Dosage: 5 MG/ML INJECTION SOLUTION, SQUIRT 1 ML INTO EACH NOSTRIL AS NEEDED FOR SEIZURES MORE THAN 5 MIN LON
  8. ONDANSETRON [Concomitant]
     Active Substance: ONDANSETRON
     Indication: Product used for unknown indication
     Dosage: 8 MG DISINTEGRATING TABLET AS NEEDED (PRN)

REACTIONS (3)
  - Seizure [Unknown]
  - Infectious mononucleosis [Unknown]
  - Pneumonia [Unknown]
